FAERS Safety Report 10267901 (Version 1)
Quarter: 2014Q2

REPORT INFORMATION
  Report Type: Spontaneous
  Country: TR (occurrence: TR)
  Receive Date: 20140630
  Receipt Date: 20140630
  Transmission Date: 20141212
  Serious: Yes (Hospitalization)
  Sender: FDA-Public Use
  Company Number: TR-MYLANLABS-2014S1014420

PATIENT
  Sex: Male

DRUGS (4)
  1. PROPRANOLOL [Suspect]
     Indication: HAEMANGIOMA
     Dosage: 0.5MG/KG/DAY INCREASED GRADUALLY TO 2MG/KG/DAY
     Route: 065
  2. PROPRANOLOL [Suspect]
     Indication: OFF LABEL USE
     Dosage: 0.5MG/KG/DAY INCREASED GRADUALLY TO 2MG/KG/DAY
     Route: 065
  3. PROPRANOLOL [Suspect]
     Indication: HAEMANGIOMA
     Dosage: 2MG/KG/DAY
     Route: 065
  4. PROPRANOLOL [Suspect]
     Indication: OFF LABEL USE
     Dosage: 2MG/KG/DAY
     Route: 065

REACTIONS (1)
  - Hyperkalaemia [Recovering/Resolving]
